FAERS Safety Report 12544482 (Version 1)
Quarter: 2016Q3

REPORT INFORMATION
  Report Type: Spontaneous
  Country: US (occurrence: US)
  Receive Date: 20160711
  Receipt Date: 20160711
  Transmission Date: 20161109
  Serious: No
  Sender: FDA-Public Use
  Company Number: US-PFIZER INC-2016329085

PATIENT
  Age: 70 Year
  Sex: Male

DRUGS (6)
  1. SUNITINIB MALATE. [Suspect]
     Active Substance: SUNITINIB MALATE
     Indication: RENAL CANCER METASTATIC
     Dosage: UNK
  2. IMOXINE [Suspect]
     Active Substance: INVESTIGATIONAL PRODUCT
     Indication: RENAL CANCER METASTATIC
     Dosage: UNK
  3. IL-21 [Suspect]
     Active Substance: DENENICOKIN
     Indication: RENAL CANCER METASTATIC
     Dosage: UNK
  4. VEGLIN [Suspect]
     Active Substance: INVESTIGATIONAL PRODUCT
     Indication: RENAL CANCER METASTATIC
     Dosage: UNK
  5. EVEROLIMUS [Suspect]
     Active Substance: EVEROLIMUS
     Indication: RENAL CANCER METASTATIC
     Dosage: UNK
  6. SORAFENIB [Suspect]
     Active Substance: SORAFENIB
     Indication: RENAL CANCER METASTATIC
     Dosage: UNK

REACTIONS (2)
  - Renal cancer metastatic [Unknown]
  - Disease progression [Unknown]
